FAERS Safety Report 22125379 (Version 1)
Quarter: 2023Q1

REPORT INFORMATION
  Report Type: Spontaneous
  Country: CA (occurrence: CA)
  Receive Date: 20230322
  Receipt Date: 20230322
  Transmission Date: 20230417
  Serious: Yes (Other)
  Sender: FDA-Public Use
  Company Number: CA-TEVA-2023-CA-2867982

PATIENT
  Age: 54 Year
  Sex: Male

DRUGS (1)
  1. PREGABALIN [Suspect]
     Active Substance: PREGABALIN
     Indication: Neurectomy
     Dosage: 300 MILLIGRAM DAILY;
     Route: 048

REACTIONS (2)
  - Low density lipoprotein increased [Recovered/Resolved]
  - Off label use [Recovered/Resolved]
